FAERS Safety Report 9543418 (Version 2)
Quarter: 2013Q4

REPORT INFORMATION
  Report Type: Spontaneous
  Country: US (occurrence: US)
  Receive Date: 20130923
  Receipt Date: 20131008
  Transmission Date: 20140711
  Serious: Yes (Other)
  Sender: FDA-Public Use
  Company Number: US-TEVA-433806USA

PATIENT
  Age: 35 Year
  Sex: Female
  Weight: 61.74 kg

DRUGS (1)
  1. PARAGARD 380A [Suspect]
     Indication: CONTRACEPTION
     Route: 015
     Dates: start: 201106, end: 20130821

REACTIONS (3)
  - Embedded device [Not Recovered/Not Resolved]
  - Medical device complication [Not Recovered/Not Resolved]
  - Device breakage [Unknown]
